FAERS Safety Report 8319877-2 (Version None)
Quarter: 2012Q2

REPORT INFORMATION
  Report Type: 
  Country: None (occurrence: None)
  Receive Date: 20120427
  Receipt Date: 20120423
  Transmission Date: 20120825
  Serious: Yes (Other)
  Sender: FDA-Public Use
  Company Number: ES-B.I. PHARMACEUTICALS,INC./RIDGEFIELD-2012-EU-02260GD

PATIENT
  Age: 61 Year
  Sex: Male

DRUGS (2)
  1. PRAMIPEXOLE DIHYDROCHLORIDE [Suspect]
     Indication: PARKINSON'S DISEASE
     Dosage: 2.1 MG
  2. RASAGILINE [Concomitant]
     Indication: PARKINSON'S DISEASE
     Dosage: 1 MG

REACTIONS (2)
  - JEALOUS DELUSION [None]
  - MARITAL PROBLEM [None]
